FAERS Safety Report 20935363 (Version 3)
Quarter: 2022Q3

REPORT INFORMATION
  Report Type: Report from Study
  Country: US (occurrence: US)
  Receive Date: 20220609
  Receipt Date: 20220908
  Transmission Date: 20221027
  Serious: Yes (Other)
  Sender: FDA-Public Use
  Company Number: US-drreddys-CLI/USA/22/0150788

PATIENT
  Age: 23 Year
  Sex: Female

DRUGS (4)
  1. ACCUTANE [Suspect]
     Active Substance: ISOTRETINOIN
     Indication: Acne
     Dosage: RMA ISSUE DATE: 07 DECEMBER 2021 04:15:25 PM, 14 JANUARY 2022 09:45:32 AM, 07 FEBRUARY 2022 01:40:14
     Dates: start: 20211207, end: 20220501
  2. ACCUTANE [Suspect]
     Active Substance: ISOTRETINOIN
     Dates: start: 2021, end: 2021
  3. ACCUTANE [Suspect]
     Active Substance: ISOTRETINOIN
     Dates: start: 2019, end: 2019
  4. ACCUTANE [Suspect]
     Active Substance: ISOTRETINOIN
     Dates: start: 20190226, end: 20220304

REACTIONS (3)
  - Exposure during pregnancy [Unknown]
  - Alopecia [Unknown]
  - Treatment noncompliance [Unknown]

NARRATIVE: CASE EVENT DATE: 20220304
